FAERS Safety Report 8337560 (Version 4)
Quarter: 2012Q4

REPORT INFORMATION
  Report Type: 
  Country: US (occurrence: US)
  Receive Date: 20120116
  Receipt Date: 20121003
  Transmission Date: 20130627
  Serious: Yes (Hospitalization)
  Sender: FDA-Public Use
  Company Number: US-BAYER-2012-003342

PATIENT
  Age: 36 Year
  Sex: Female
  Weight: 88.89 kg

DRUGS (5)
  1. OCELLA [Suspect]
     Dosage: UNK
     Route: 048
     Dates: start: 200909, end: 201001
  2. YASMIN [Suspect]
     Dosage: UNK
     Dates: start: 200909
  3. PROVENTIL [Concomitant]
     Indication: ASTHMA
  4. SYNTHROID [Concomitant]
     Indication: HYPOTHYROIDISM
  5. CYMBALTA [Concomitant]
     Indication: DEPRESSION

REACTIONS (4)
  - Deep vein thrombosis [None]
  - Injury [None]
  - Pain [None]
  - Fear [None]
